FAERS Safety Report 7066861-5 (Version None)
Quarter: 2010Q4

REPORT INFORMATION
  Report Type: 
  Country: None (occurrence: None)
  Receive Date: 20101027
  Receipt Date: 20101012
  Transmission Date: 20110411
  Serious: No
  Sender: FDA-Public Use
  Company Number: US-WYE-H17450110

PATIENT
  Sex: Female
  Weight: 61.29 kg

DRUGS (5)
  1. PREMPRO [Suspect]
     Indication: PREMENSTRUAL SYNDROME
     Dosage: 0.3/1.5 MG
     Route: 048
     Dates: start: 20100901, end: 20100901
  2. PREMPRO [Suspect]
     Dosage: 0.45MG/1.5MG
     Route: 048
     Dates: end: 20100901
  3. PREMPRO [Suspect]
     Dosage: UNKNOWN
     Route: 048
     Dates: start: 19950101
  4. FLUOXETINE [Suspect]
     Indication: DEPRESSION
     Dosage: UNKNOWN
     Dates: start: 19950101, end: 20100901
  5. VITAMINS [Concomitant]

REACTIONS (2)
  - DRUG HYPERSENSITIVITY [None]
  - RASH [None]
